FAERS Safety Report 24882415 (Version 1)
Quarter: 2025Q1

REPORT INFORMATION
  Report Type: Spontaneous
  Country: US (occurrence: None)
  Receive Date: 20250123
  Receipt Date: 20250123
  Transmission Date: 20250409
  Serious: Yes (Life-Threatening)
  Sender: FDA-CTU
  Company Number: None

PATIENT
  Age: 86 Year
  Sex: Female
  Weight: 76.66 kg

DRUGS (12)
  1. UMECLIDINIUM BROMIDE\VILANTEROL TRIFENATATE [Suspect]
     Active Substance: UMECLIDINIUM BROMIDE\VILANTEROL TRIFENATATE
     Indication: Asthma
     Route: 048
     Dates: start: 20241029, end: 20241112
  2. ALBUTEROL [Concomitant]
     Active Substance: ALBUTEROL
  3. OXYGEN [Concomitant]
     Active Substance: OXYGEN
  4. LEVOXYL [Concomitant]
     Active Substance: LEVOTHYROXINE SODIUM
  5. PRAVACHOL [Concomitant]
     Active Substance: PRAVASTATIN SODIUM
  6. NORVASC [Concomitant]
     Active Substance: AMLODIPINE BESYLATE
  7. TYLENOL [Concomitant]
     Active Substance: ACETAMINOPHEN
  8. CONVERIED MACHINE [Concomitant]
  9. SPIRIVA [Concomitant]
     Active Substance: TIOTROPIUM BROMIDE MONOHYDRATE
  10. V B6 [Concomitant]
  11. ASPIRIN [Concomitant]
     Active Substance: ASPIRIN
  12. CHOLEST OFF + TYLENOL [Concomitant]

REACTIONS (3)
  - Cough [None]
  - Pulmonary oedema [None]
  - Lung disorder [None]
